FAERS Safety Report 6039936-7 (Version None)
Quarter: 2009Q1

REPORT INFORMATION
  Report Type: 
  Country: None (occurrence: None)
  Receive Date: 20090116
  Receipt Date: 20071129
  Transmission Date: 20090719
  Serious: No
  Sender: FDA-Public Use
  Company Number: US-BRISTOL-MYERS SQUIBB COMPANY-13805957

PATIENT
  Age: 61 Year
  Sex: Male

DRUGS (4)
  1. ABILIFY [Suspect]
     Indication: SCHIZOAFFECTIVE DISORDER
     Dosage: 1 DOSAGE FORM= 5:10 UNITS NOT SPECIFIED. REDUCED BACK TO 5 MG.
     Route: 048
     Dates: start: 20060601, end: 20070601
  2. LITHIUM [Concomitant]
     Dates: start: 20060601, end: 20070601
  3. TEMAZEPAM [Concomitant]
  4. BUPROPION HCL [Concomitant]
     Dates: start: 20061201

REACTIONS (1)
  - TEMPERATURE REGULATION DISORDER [None]
